FAERS Safety Report 17874957 (Version 1)
Quarter: 2020Q2

REPORT INFORMATION
  Report Type: Spontaneous
  Country: US (occurrence: US)
  Receive Date: 20200608
  Receipt Date: 20200608
  Transmission Date: 20200714
  Serious: Yes (Disabling, Other)
  Sender: FDA-Public Use
  Company Number: None

PATIENT
  Age: 33 Year
  Weight: 76.5 kg

DRUGS (1)
  1. FINASTERIDE (PROPECIA) [Suspect]
     Active Substance: FINASTERIDE
     Indication: ALOPECIA
     Dates: start: 20170820, end: 20170820

REACTIONS (17)
  - Cognitive disorder [None]
  - Genital paraesthesia [None]
  - Ejaculation failure [None]
  - Ejaculation disorder [None]
  - Dysphonia [None]
  - Depression [None]
  - Spontaneous penile erection [None]
  - Oxidative stress [None]
  - Memory impairment [None]
  - Disturbance in attention [None]
  - Male orgasmic disorder [None]
  - Weight loss poor [None]
  - Psoriasis [None]
  - Gynaecomastia [None]
  - Insomnia [None]
  - Anxiety [None]
  - Body fat disorder [None]

NARRATIVE: CASE EVENT DATE: 20170820
